FAERS Safety Report 15498135 (Version 1)
Quarter: 2018Q4

REPORT INFORMATION
  Report Type: Spontaneous
  Country: US (occurrence: US)
  Receive Date: 20181005
  Receipt Date: 20181005
  Transmission Date: 20190205
  Serious: No
  Sender: FDA-Public Use
  Company Number: None

PATIENT
  Age: 53 Year
  Sex: Female
  Weight: 60.33 kg

DRUGS (1)
  1. CIMZIA [Suspect]
     Active Substance: CERTOLIZUMAB PEGOL
     Indication: PSORIASIS
     Dosage: INJECT 400MG SUBCUTANEOUSLY AT WEEKS 0, 2 AND 4 AS DIRECTED *REFRIGERATE! DO NOT FREEZE!*
     Route: 058
     Dates: start: 201804

REACTIONS (3)
  - Dizziness [None]
  - Mycotic allergy [None]
  - Post procedural complication [None]
